FAERS Safety Report 10900981 (Version 1)
Quarter: 2015Q1

REPORT INFORMATION
  Report Type: Spontaneous
  Country: US (occurrence: None)
  Receive Date: 20150303
  Receipt Date: 20150303
  Transmission Date: 20150721
  Serious: Yes (Hospitalization)
  Sender: FDA-Public Use
  Company Number: US-SEPTODONT-201502502

PATIENT
  Age: 40 Year
  Sex: Female

DRUGS (2)
  1. LIDOCAINE HYDROCHLORIDE 2% WITH EPINEPHRINE 1:100,000 INJECTION LIDOCAINE HYDROCHLORIDE; EPINEPHRINE BITARTRATE [Suspect]
     Active Substance: EPINEPHRINE\LIDOCAINE HYDROCHLORIDE
     Indication: LOCAL ANAESTHESIA
     Dosage: 1 DF TOTAL DENTAL
     Route: 004
  2. ORABLOC 40; 10 MG/ML INJECTION (ARTICAINE HYDROCHLORIDE; EPINEPHRINE BITARTRATE) [Concomitant]

REACTIONS (6)
  - Visual impairment [None]
  - Hypersensitivity [None]
  - Dyspnoea [None]
  - Diplopia [None]
  - Blood pressure increased [None]
  - Pharyngeal oedema [None]
